FAERS Safety Report 24097962 (Version 2)
Quarter: 2024Q4

REPORT INFORMATION
  Report Type: Report from Study
  Country: US (occurrence: US)
  Receive Date: 20240716
  Receipt Date: 20241015
  Transmission Date: 20250115
  Serious: Yes (Hospitalization)
  Sender: BIOGEN
  Company Number: US-BIOGEN-2023BI01240775

PATIENT
  Sex: Male

DRUGS (5)
  1. SKYCLARYS [Suspect]
     Active Substance: OMAVELOXOLONE
     Indication: Friedreich^s ataxia
     Route: 050
     Dates: start: 20230821
  2. SKYCLARYS [Suspect]
     Active Substance: OMAVELOXOLONE
     Route: 050
     Dates: start: 20230821
  3. SKYCLARYS [Suspect]
     Active Substance: OMAVELOXOLONE
     Dosage: 50MG 3 CAPSULES BY MOUTH ONCE DAILY
     Route: 050
     Dates: start: 20230821
  4. SKYCLARYS [Suspect]
     Active Substance: OMAVELOXOLONE
     Dosage: 50MG 3 CAPSULES BY MOUTH ONCE DAILY
     Route: 050
     Dates: start: 20230821
  5. SKYCLARYS [Suspect]
     Active Substance: OMAVELOXOLONE
     Dosage: 50MG 3 CAPSULES BY MOUTH ONCE DAILY
     Route: 050
     Dates: start: 20230821

REACTIONS (9)
  - Rash pruritic [Unknown]
  - Headache [Unknown]
  - Fall [Unknown]
  - Joint injury [Unknown]
  - Product dose omission issue [Unknown]
  - Rash [Unknown]
  - Decreased appetite [Unknown]
  - Abdominal pain upper [Unknown]
  - Diarrhoea [Unknown]

NARRATIVE: CASE EVENT DATE: 20230101
